FAERS Safety Report 4952034-6 (Version None)
Quarter: 2006Q1

REPORT INFORMATION
  Report Type: 
  Country: None (occurrence: None)
  Receive Date: 20060322
  Receipt Date: 20060322
  Transmission Date: 20060701
  Serious: No
  Sender: FDA-Public Use
  Company Number: None

PATIENT
  Age: 44 Year
  Sex: Male
  Weight: 103.4201 kg

DRUGS (10)
  1. ZYPREXA [Suspect]
     Indication: MENTAL DISORDER
     Dosage: 5MG ONCE DAILY ORAL
     Route: 048
     Dates: start: 20040101, end: 20060101
  2. XANAX [Concomitant]
  3. ZANAFLEX [Concomitant]
  4. LASIX [Concomitant]
  5. LEXAPRO [Concomitant]
  6. OXYCONTIN [Concomitant]
  7. ZESTRIL [Concomitant]
  8. TYLOX [Concomitant]
  9. NEURONTIN [Concomitant]
  10. COUMADIN [Concomitant]

REACTIONS (1)
  - BLOOD GLUCOSE INCREASED [None]
